FAERS Safety Report 7286074 (Version 2)
Quarter: 2012Q4

REPORT INFORMATION
  Report Type: 
  Country: GB (occurrence: US)
  Receive Date: 20100219
  Receipt Date: 20121129
  Transmission Date: 20130627
  Serious: Yes (Life-Threatening, Hospitalization)
  Sender: FDA-Public Use
  Company Number: US-MPIJNJ-2010-01218

PATIENT
  Age: 68 Year
  Sex: Female
  Weight: 57.5 kg

DRUGS (8)
  1. VELCADE [Suspect]
     Indication: MANTLE CELL LYMPHOMA
     Dosage: 1.7 mg, Cyclic
     Route: 042
     Dates: start: 20100104, end: 20100111
  2. RITUXIMAB [Suspect]
     Indication: MANTLE CELL LYMPHOMA
  3. CYCLOPHOSPHAMIDE [Suspect]
     Indication: MANTLE CELL LYMPHOMA
  4. VINCRISTINE [Suspect]
     Indication: MANTLE CELL LYMPHOMA
  5. DOXORUBICIN [Suspect]
     Indication: MANTLE CELL LYMPHOMA
  6. DEXAMETHASONE [Suspect]
     Indication: MANTLE CELL LYMPHOMA
  7. METHOTREXATE [Suspect]
     Indication: MANTLE CELL LYMPHOMA
  8. CYTARABINE [Suspect]

REACTIONS (3)
  - Febrile neutropenia [Unknown]
  - Acute respiratory failure [Unknown]
  - Pneumonia [Unknown]
